FAERS Safety Report 5657252-X (Version None)
Quarter: 2008Q1

REPORT INFORMATION
  Report Type: 
  Country: None (occurrence: None)
  Receive Date: 20080310
  Receipt Date: 20080229
  Transmission Date: 20080703
  Serious: Yes (Hospitalization)
  Sender: FDA-Public Use
  Company Number: DE-BRISTOL-MYERS SQUIBB COMPANY-14104053

PATIENT
  Age: 54 Year
  Sex: Male

DRUGS (4)
  1. ERBITUX [Suspect]
     Indication: HYPOPHARYNGEAL CANCER
     Dosage: INITIAL DOSE 400MG/M2 I IN I WEEK FROM 17-SEP-2007 TO 24-SEP- 2007
     Route: 041
     Dates: start: 20070924, end: 20070924
  2. DOCETAXEL [Suspect]
     Indication: HYPOPHARYNGEAL CANCER
     Route: 041
     Dates: start: 20070917, end: 20070924
  3. TAVEGIL [Concomitant]
     Indication: PREMEDICATION
     Dosage: TAVEGIL 17-SEP-2007-  30MIN PRIOR INFUSION(2MG).
     Dates: start: 20070917
  4. TAGAMET [Concomitant]
     Indication: PREMEDICATION
     Dosage: TAGAMET 17-SEP-2007-  30MIN PRIOR INFUSION(200MG).
     Dates: start: 20070917

REACTIONS (1)
  - PNEUMONIA [None]
